FAERS Safety Report 25439801 (Version 1)
Quarter: 2025Q2

REPORT INFORMATION
  Report Type: Spontaneous
  Country: US (occurrence: None)
  Receive Date: 20250615
  Receipt Date: 20250615
  Transmission Date: 20250717
  Serious: Yes (Death)
  Sender: FDA-CTU
  Company Number: None

PATIENT
  Age: 4 Year
  Sex: Male
  Weight: 15.3 kg

DRUGS (4)
  1. PROZAC [Suspect]
     Active Substance: FLUOXETINE HYDROCHLORIDE
     Indication: Product used for unknown indication
     Dosage: OTHER QUANTITY : 2 MILLILITRES;?FREQUENCY : DAILY;?
     Route: 048
     Dates: start: 20250608, end: 20250613
  2. LEVOCETIRIZINE [Suspect]
     Active Substance: LEVOCETIRIZINE
     Indication: Product used for unknown indication
     Dosage: OTHER QUANTITY : 5 MILLILITERS;?FREQUENCY : DAILY;?
     Route: 048
     Dates: start: 20250609, end: 20250613
  3. CLONIDINE HYDROCHLORIDE [Suspect]
     Active Substance: CLONIDINE HYDROCHLORIDE
  4. CHILDRENS MOTRIN [Concomitant]
     Active Substance: IBUPROFEN

REACTIONS (7)
  - Pyrexia [None]
  - Irritability [None]
  - Food refusal [None]
  - Respiratory arrest [None]
  - Pulse absent [None]
  - Pulmonary oedema [None]
  - Blood glucose decreased [None]

NARRATIVE: CASE EVENT DATE: 20250613
